FAERS Safety Report 10400726 (Version 1)
Quarter: 2014Q1

REPORT INFORMATION
  Report Type: Spontaneous
  Country: US (occurrence: None)
  Receive Date: 20130815
  Receipt Date: 20130815
  Transmission Date: 20141002
  Serious: Yes (Hospitalization, Other)
  Sender: FDA-Public Use
  Company Number: ADR-2012-01424

PATIENT
  Sex: Male

DRUGS (1)
  1. LIORESAL INTRATHECAL (BACLOFEN INJECTION) 1000 MCG/ML [Suspect]
     Indication: MUSCLE SPASTICITY
     Dosage: 55 MCG/DAY

REACTIONS (5)
  - No therapeutic response [None]
  - Sarcoma metastatic [None]
  - Automatic bladder [None]
  - Hypotonia [None]
  - Gait disturbance [None]
